FAERS Safety Report 6035281-4 (Version None)
Quarter: 2009Q1

REPORT INFORMATION
  Report Type: 
  Country: None (occurrence: None)
  Receive Date: 20090109
  Receipt Date: 20081211
  Transmission Date: 20090719
  Serious: Yes (Other)
  Sender: FDA-Public Use
  Company Number: 123473

PATIENT
  Age: 43 Year
  Sex: Female

DRUGS (4)
  1. PACLITAXEL INJECTION (6 MG/ML) (PACLITAXEL) [Suspect]
     Indication: BREAST CANCER
     Dosage: 175 MG/M2,
  2. DOCETAXEL [Suspect]
     Indication: BREAST CANCER
     Dosage: 75 MG/M2,
  3. DOXORUBICIN HCL [Concomitant]
  4. CYCLOPHOSPHAMIDE [Concomitant]

REACTIONS (11)
  - ANAEMIA [None]
  - AUTONOMIC NEUROPATHY [None]
  - DYSURIA [None]
  - FATIGUE [None]
  - INCONTINENCE [None]
  - MUSCULOSKELETAL PAIN [None]
  - MYALGIA [None]
  - NEUROPATHY PERIPHERAL [None]
  - TERMINAL DRIBBLING [None]
  - URINARY HESITATION [None]
  - URINE FLOW DECREASED [None]
